FAERS Safety Report 8875498 (Version 1)
Quarter: 2012Q4

REPORT INFORMATION
  Report Type: 
  Country: US (occurrence: US)
  Receive Date: 20121023
  Receipt Date: 20121023
  Transmission Date: 20130627
  Serious: No
  Sender: FDA-Public Use
  Company Number: US-ASTRAZENECA-2012SE76156

PATIENT
  Age: 38 Year
  Sex: Female
  Weight: 113.4 kg

DRUGS (7)
  1. SYMBICORT PMDI [Suspect]
     Indication: ASTHMA
     Dosage: 160 MCG, TWO PUFFS, TWO TIMES A DAY
     Route: 055
     Dates: start: 2010
  2. SYMBICORT PMDI [Suspect]
     Indication: ASTHMA
     Dosage: 160 MCG, TWO PUFFS, TWO TIMES A DAY
     Route: 055
     Dates: start: 20120929
  3. ACCOLATE [Concomitant]
     Indication: ASTHMA
     Route: 048
     Dates: start: 1997
  4. ZYRTEC OTC [Concomitant]
     Indication: MULTIPLE ALLERGIES
     Route: 048
     Dates: start: 2002
  5. NASONEX [Concomitant]
     Indication: MULTIPLE ALLERGIES
     Dosage: 2 PUFFS, EACH NOSTRIL, TWO TIMES A DAY
     Route: 055
     Dates: start: 2002
  6. ASTELIN [Concomitant]
     Indication: MULTIPLE ALLERGIES
     Dosage: 1 PUFF, EACH NOSTRIL, TWO TIMES A DAY
     Route: 045
     Dates: start: 2010
  7. VENTOLIN [Concomitant]
     Indication: PROPHYLAXIS AGAINST BRONCHOSPASM
     Dosage: PRN
     Route: 055
     Dates: start: 1977

REACTIONS (2)
  - Dyspnoea [Unknown]
  - Drug dose omission [Unknown]
